FAERS Safety Report 7153608-7 (Version None)
Quarter: 2010Q4

REPORT INFORMATION
  Report Type: 
  Country: None (occurrence: None)
  Receive Date: 20101213
  Receipt Date: 20101210
  Transmission Date: 20110411
  Serious: Yes (Life-Threatening)
  Sender: FDA-Public Use
  Company Number: IT-BRISTOL-MYERS SQUIBB COMPANY-15435167

PATIENT
  Age: 71 Year
  Sex: Male
  Weight: 45 kg

DRUGS (2)
  1. CISPLATIN [Suspect]
     Indication: GASTROOESOPHAGEAL CANCER
     Dosage: ON DAY 1 OF CYCLE; RECENT INF ON 06NOV2010.
     Route: 042
     Dates: start: 20100708, end: 20101106
  2. XELODA [Suspect]
     Indication: GASTROOESOPHAGEAL CANCER
     Dosage: FORM: TABLET; ON DAY 1-15; RECENT DOSE ON 20NOV2010.
     Route: 048
     Dates: start: 20100708

REACTIONS (1)
  - PULMONARY EMBOLISM [None]
